FAERS Safety Report 4495280-0 (Version None)
Quarter: 2004Q4

REPORT INFORMATION
  Report Type: 
  Country: None (occurrence: None)
  Receive Date: 20041108
  Receipt Date: 20040825
  Transmission Date: 20050328
  Serious: No
  Sender: FDA-Public Use
  Company Number: US-GLAXOSMITHKLINE-A0523477A

PATIENT
  Age: 57 Year
  Sex: Male

DRUGS (4)
  1. AVANDAMET [Suspect]
     Route: 048
     Dates: start: 20040727
  2. LISINOPRIL AND HYDROCHLOROTHIAZIDE [Concomitant]
     Route: 065
  3. ALLOPURINOL [Concomitant]
  4. MULTI-VITAMIN [Concomitant]

REACTIONS (5)
  - ANOREXIA [None]
  - DIARRHOEA [None]
  - FATIGUE [None]
  - FEELING JITTERY [None]
  - NAUSEA [None]
